FAERS Safety Report 5319188-3 (Version None)
Quarter: 2007Q2

REPORT INFORMATION
  Report Type: 
  Country: None (occurrence: None)
  Receive Date: 20070508
  Receipt Date: 20070504
  Transmission Date: 20071010
  Serious: Yes (Hospitalization)
  Sender: FDA-Public Use
  Company Number: DE-ASTRAZENECA-2007PK00940

PATIENT
  Age: 49 Year
  Sex: Male

DRUGS (5)
  1. NEXIUM [Suspect]
     Route: 048
     Dates: start: 20060926
  2. EUNERPAN [Suspect]
     Indication: ALCOHOL WITHDRAWAL SYNDROME
     Route: 048
     Dates: start: 20060926, end: 20060928
  3. EUNERPAN [Suspect]
     Route: 048
     Dates: start: 20060930, end: 20061002
  4. FOLIC ACID [Concomitant]
     Route: 048
     Dates: start: 20060926
  5. NEUROTRAT FORTE [Concomitant]
     Route: 048
     Dates: start: 20060926

REACTIONS (1)
  - ILEUS PARALYTIC [None]
